FAERS Safety Report 8303500-7 (Version None)
Quarter: 2012Q2

REPORT INFORMATION
  Report Type: 
  Country: None (occurrence: None)
  Receive Date: 20120418
  Receipt Date: 20120413
  Transmission Date: 20120825
  Serious: Yes (Hospitalization, Other)
  Sender: FDA-Public Use
  Company Number: 2011SP056193

PATIENT
  Age: 40 Year
  Sex: Female
  Weight: 106.5953 kg

DRUGS (1)
  1. NUVARING [Suspect]
     Indication: CONTRACEPTION
     Dates: start: 20040101, end: 20081222

REACTIONS (32)
  - PROTEIN C DECREASED [None]
  - PROTEIN S DECREASED [None]
  - DIASTOLIC DYSFUNCTION [None]
  - ATELECTASIS [None]
  - DEPRESSION [None]
  - OSTEOARTHRITIS [None]
  - SYNOVIAL CYST [None]
  - LEFT ATRIAL DILATATION [None]
  - HEPATIC STEATOSIS [None]
  - BASAL CELL CARCINOMA [None]
  - IMMOBILE [None]
  - MENISCUS LESION [None]
  - GRAFT COMPLICATION [None]
  - ROAD TRAFFIC ACCIDENT [None]
  - TRANSPLANT [None]
  - IRON DEFICIENCY ANAEMIA [None]
  - BREAST MASS [None]
  - RENAL FAILURE ACUTE [None]
  - HYPERTENSION [None]
  - VENOUS RECANALISATION [None]
  - PULMONARY EMBOLISM [None]
  - DEEP VEIN THROMBOSIS [None]
  - VULVAL CANCER [None]
  - HYPOTHYROIDISM [None]
  - LIGAMENT RUPTURE [None]
  - HYPERHIDROSIS [None]
  - DEHYDRATION [None]
  - ANXIETY [None]
  - JOINT EFFUSION [None]
  - OEDEMA PERIPHERAL [None]
  - PULMONARY ARTERY THROMBOSIS [None]
  - JOINT INJURY [None]
